FAERS Safety Report 21551565 (Version 7)
Quarter: 2023Q1

REPORT INFORMATION
  Report Type: Spontaneous
  Country: CA (occurrence: CA)
  Receive Date: 20221104
  Receipt Date: 20230322
  Transmission Date: 20230417
  Serious: Yes (Other)
  Sender: FDA-Public Use
  Company Number: CA-CELLTRION INC.-2022CA016347

PATIENT

DRUGS (18)
  1. INFLECTRA [Suspect]
     Active Substance: INFLIXIMAB-DYYB
     Indication: Colitis ulcerative
     Dosage: 10 MG/KG EVERY 6 WEEKS, INDUCTION WEEKS 0, 2, 6 THEN MAINTENANCE Q 6 WEEKS
     Route: 042
     Dates: start: 20220812, end: 20220923
  2. INFLECTRA [Suspect]
     Active Substance: INFLIXIMAB-DYYB
     Dosage: 10 MG/KG EVERY 4 WEEK
     Route: 042
     Dates: start: 20220921
  3. INFLECTRA [Suspect]
     Active Substance: INFLIXIMAB-DYYB
     Dosage: SUPPOSE TO RECEIVE 10 MG/KG, EVERY 6 WEEKS
     Route: 042
     Dates: start: 20220923
  4. INFLECTRA [Suspect]
     Active Substance: INFLIXIMAB-DYYB
     Dosage: SUPPOSE TO RECEIVE 10 MG/KG, EVERY 6 WEEKS
     Route: 042
     Dates: start: 20220923
  5. INFLECTRA [Suspect]
     Active Substance: INFLIXIMAB-DYYB
     Dosage: 10 MG/KG EVERY 4 WEEK
     Route: 042
     Dates: start: 20221021
  6. INFLECTRA [Suspect]
     Active Substance: INFLIXIMAB-DYYB
     Dosage: 10 MG/KG EVERY 4 WEEK
     Route: 042
     Dates: start: 20221118
  7. INFLECTRA [Suspect]
     Active Substance: INFLIXIMAB-DYYB
     Dosage: 10 MG/KG EVERY 4 WEEK
     Route: 042
     Dates: start: 20221216
  8. INFLECTRA [Suspect]
     Active Substance: INFLIXIMAB-DYYB
     Dosage: 10 MG/KG EVERY 4 WEEK
     Route: 042
     Dates: start: 20230113
  9. INFLECTRA [Suspect]
     Active Substance: INFLIXIMAB-DYYB
     Dosage: 10 MG/KG EVERY 4 WEEK
     Route: 042
     Dates: start: 20230210
  10. INFLECTRA [Suspect]
     Active Substance: INFLIXIMAB-DYYB
     Dosage: 630 MG 10 MG/KG EVERY 4 WEEK
     Route: 042
     Dates: start: 20230310
  11. CALCIUM [Concomitant]
     Active Substance: CALCIUM
     Dosage: 1 DF
  12. CALCIUM [Concomitant]
     Active Substance: CALCIUM
     Dosage: 1 DF, DOSAGE UNKNOWN
     Route: 065
  13. PREDNISONE [Concomitant]
     Active Substance: PREDNISONE
     Dosage: 35 MG
     Dates: start: 20220720
  14. PREDNISONE [Concomitant]
     Active Substance: PREDNISONE
     Dosage: 20 MG, DAILY, TO BE INCREASED TO 40 MG WITH A TAPER
     Route: 048
     Dates: start: 20220720
  15. PREDNISONE [Concomitant]
     Active Substance: PREDNISONE
     Dosage: 20 MG,1X/DAY, TO BE INCREASED TO 40 MG WITH A TAPER
     Route: 048
     Dates: start: 20220720
  16. PREDNISONE [Concomitant]
     Active Substance: PREDNISONE
     Dosage: 20 MG, DAILY
     Route: 048
     Dates: start: 20220923
  17. VITAMIN D NOS [Concomitant]
     Active Substance: VITAMIN D NOS
     Dosage: 1 DF
  18. VITAMIN D NOS [Concomitant]
     Active Substance: VITAMIN D NOS
     Dosage: 1 DF, DOSAGE UNKNOWN
     Route: 065

REACTIONS (10)
  - Colitis ulcerative [Unknown]
  - Haematochezia [Recovering/Resolving]
  - Off label use [Unknown]
  - Off label use [Unknown]
  - Off label use [Unknown]
  - Condition aggravated [Recovering/Resolving]
  - Malaise [Not Recovered/Not Resolved]
  - Infection [Unknown]
  - Abdominal pain upper [Recovering/Resolving]
  - COVID-19 [Not Recovered/Not Resolved]

NARRATIVE: CASE EVENT DATE: 20220101
